FAERS Safety Report 21851537 (Version 4)
Quarter: 2023Q1

REPORT INFORMATION
  Report Type: Spontaneous
  Country: US (occurrence: US)
  Receive Date: 20230112
  Receipt Date: 20230310
  Transmission Date: 20230418
  Serious: No
  Sender: FDA-Public Use
  Company Number: US-BIOGEN-2023BI01180196

PATIENT
  Age: 56 Year
  Sex: Male

DRUGS (2)
  1. TYSABRI [Suspect]
     Active Substance: NATALIZUMAB
     Indication: Multiple sclerosis
     Route: 050
     Dates: start: 20060821
  2. TYSABRI [Suspect]
     Active Substance: NATALIZUMAB
     Dosage: INFUSE EVERY 6-8 WEEKS
     Route: 050
     Dates: start: 20060821

REACTIONS (4)
  - Product dose omission issue [Recovered/Resolved]
  - Prescribed underdose [Unknown]
  - Multiple sclerosis [Unknown]
  - Multiple sclerosis relapse [Unknown]

NARRATIVE: CASE EVENT DATE: 20220817
